FAERS Safety Report 9119013 (Version 1)
Quarter: 2013Q1

REPORT INFORMATION
  Report Type: Spontaneous
  Country: DK (occurrence: None)
  Receive Date: 20130130
  Receipt Date: 20130130
  Transmission Date: 20140127
  Serious: Yes (Other)
  Sender: FDA-Public Use
  Company Number: DK-SEPTODONT-200400639

PATIENT
  Age: 14 Year
  Sex: Male

DRUGS (1)
  1. SEPTANEST [Suspect]
     Indication: LOCAL ANAESTHESIA
     Dosage: DENTAL
     Dates: start: 20041020

REACTIONS (3)
  - Neuralgia [None]
  - Burning sensation [None]
  - Drug effect prolonged [None]
